FAERS Safety Report 9440399 (Version 3)
Quarter: 2014Q1

REPORT INFORMATION
  Report Type: Spontaneous
  Country: US (occurrence: US)
  Receive Date: 20130805
  Receipt Date: 20140227
  Transmission Date: 20141002
  Serious: Yes (Hospitalization, Other)
  Sender: FDA-Public Use
  Company Number: US-CUBIST PHARMACEUTICAL, INC.-2013CBST000648

PATIENT
  Sex: 0

DRUGS (34)
  1. CUBICIN [Suspect]
     Indication: JOINT ABSCESS
     Dosage: 500 MG, QD
     Route: 042
     Dates: start: 20130709, end: 20130720
  2. CUBICIN [Suspect]
     Indication: STAPHYLOCOCCAL INFECTION
     Dosage: 9 MG/KG, QD
     Route: 042
     Dates: start: 20130709, end: 20130720
  3. CUBICIN [Suspect]
     Indication: OFF LABEL USE
     Dosage: 400 MG, QD
     Route: 042
     Dates: start: 20130722, end: 20130722
  4. CUBICIN [Suspect]
     Dosage: 7 MG/KG, QD
     Route: 042
     Dates: start: 20130722, end: 20130723
  5. CUBICIN [Suspect]
     Dosage: 250 MG, QD
     Route: 042
     Dates: start: 20130723, end: 20130726
  6. CUBICIN [Suspect]
     Dosage: 4.5 MG/KG, QD
     Route: 042
     Dates: start: 20130723, end: 20130726
  7. CUBICIN [Suspect]
     Dosage: 250 MG, QD
     Route: 042
     Dates: start: 20130726
  8. FLUCONAZOLE [Concomitant]
     Indication: PRODUCT USED FOR UNKNOWN INDICATION
     Dosage: 100 MG, QD
     Route: 042
     Dates: start: 20130707, end: 20130719
  9. FLUCONAZOLE [Concomitant]
     Dosage: 100 MG, QD
     Route: 048
     Dates: start: 20130720, end: 20130726
  10. MAALOX [Concomitant]
     Indication: PRODUCT USED FOR UNKNOWN INDICATION
     Dosage: 30 ML, Q8H
     Route: 048
     Dates: start: 20130707, end: 20130709
  11. MAALOX [Concomitant]
     Dosage: 30 ML, Q8H PRN
     Route: 048
     Dates: start: 20130707, end: 20130725
  12. AZITHROMYCIN [Concomitant]
     Indication: PRODUCT USED FOR UNKNOWN INDICATION
     Dosage: 1200 MG, QMON
     Route: 048
     Dates: start: 20130708, end: 20130716
  13. AZITHROMYCIN [Concomitant]
     Dosage: ADM
     Route: 065
  14. AZITHROMYCIN [Concomitant]
     Dosage: 1200 MG, QTH
     Route: 048
     Dates: start: 20130725, end: 20130726
  15. ATOVAQUONE [Concomitant]
     Indication: PRODUCT USED FOR UNKNOWN INDICATION
     Dosage: 1500 MG, QD
     Route: 048
     Dates: start: 20130707, end: 20130726
  16. RITONAVIR [Concomitant]
     Indication: PRODUCT USED FOR UNKNOWN INDICATION
     Dosage: 100 MG, QD
     Route: 048
     Dates: start: 20130707, end: 20130726
  17. DARUNAVIR [Concomitant]
     Indication: PRODUCT USED FOR UNKNOWN INDICATION
     Dosage: 800 MG, QD
     Route: 048
     Dates: start: 20130707, end: 20130726
  18. TRUVADA [Concomitant]
     Indication: PRODUCT USED FOR UNKNOWN INDICATION
     Dosage: 1 DF, QD
     Route: 048
     Dates: start: 20130707, end: 20130726
  19. FERROUS SULFATE [Concomitant]
     Indication: PRODUCT USED FOR UNKNOWN INDICATION
     Dosage: 235 MG, TID
     Route: 048
     Dates: start: 20130707, end: 20130726
  20. DOCUSATE SODIUM [Concomitant]
     Indication: PRODUCT USED FOR UNKNOWN INDICATION
     Dosage: 100 MG, TID
     Route: 048
     Dates: start: 20130707, end: 20130726
  21. MULTIVITAMIN [Concomitant]
     Indication: PRODUCT USED FOR UNKNOWN INDICATION
     Dosage: 1 DF, QD
     Route: 048
     Dates: start: 20130707, end: 20130726
  22. ASCORBIC ACID [Concomitant]
     Indication: PRODUCT USED FOR UNKNOWN INDICATION
     Dosage: 500 MG, QD
     Route: 048
     Dates: start: 20130707, end: 20130726
  23. FAMOTIDINE [Concomitant]
     Indication: PRODUCT USED FOR UNKNOWN INDICATION
     Dosage: 20 MG, QD
     Route: 048
     Dates: start: 20130707, end: 20130726
  24. MEGESTROL [Concomitant]
     Indication: PRODUCT USED FOR UNKNOWN INDICATION
     Dosage: 800 MG, QD
     Route: 048
     Dates: start: 20130707, end: 20130726
  25. CITALOPRAM [Concomitant]
     Indication: PRODUCT USED FOR UNKNOWN INDICATION
     Dosage: 20 MG, QD
     Route: 048
     Dates: start: 20130707, end: 20130726
  26. CITALOPRAM [Concomitant]
     Dosage: ADM
     Route: 065
  27. MIRTAZAPINE [Concomitant]
     Indication: PRODUCT USED FOR UNKNOWN INDICATION
     Dosage: 15 MG, QHS
     Route: 048
     Dates: start: 20130707, end: 20130726
  28. ALPRAZOLAM [Concomitant]
     Indication: PRODUCT USED FOR UNKNOWN INDICATION
     Dosage: 0.25 MG, Q12H
     Route: 048
     Dates: start: 20130707, end: 20130726
  29. ALPRAZOLAM [Concomitant]
     Dosage: 0.5 MG, UNK
     Route: 065
  30. HEPARINE SODIUM [Concomitant]
     Indication: THROMBOSIS PROPHYLAXIS
     Dosage: 5000 UNITS, Q8H
     Route: 058
     Dates: start: 20130707, end: 20130726
  31. CEFAZOLIN [Concomitant]
     Indication: PRODUCT USED FOR UNKNOWN INDICATION
     Dosage: ADM
     Route: 065
  32. FENTANYL [Concomitant]
     Indication: PRODUCT USED FOR UNKNOWN INDICATION
     Dosage: ADM
     Route: 065
  33. MIDAZOLAM [Concomitant]
     Indication: PRODUCT USED FOR UNKNOWN INDICATION
     Dosage: ADM
     Route: 065
  34. HYDROMORPHONE [Concomitant]
     Indication: PRODUCT USED FOR UNKNOWN INDICATION
     Dosage: 2 MG, Q4H PRN
     Route: 042
     Dates: start: 20130726, end: 20130726

REACTIONS (1)
  - Hyperkalaemia [Recovered/Resolved]
